FAERS Safety Report 14894457 (Version 1)
Quarter: 2018Q2

REPORT INFORMATION
  Report Type: Spontaneous
  Country: DE (occurrence: DE)
  Receive Date: 20180515
  Receipt Date: 20180515
  Transmission Date: 20180711
  Serious: Yes (Hospitalization)
  Sender: FDA-Public Use
  Company Number: DE-TEVA-2018-DE-892312

PATIENT
  Sex: Male

DRUGS (1)
  1. TAMSULOSIN [Suspect]
     Active Substance: TAMSULOSIN
     Route: 065

REACTIONS (6)
  - Dehydration [Unknown]
  - Blood pressure increased [Unknown]
  - Dyspnoea [Unknown]
  - Pollakiuria [Unknown]
  - Heart rate increased [Unknown]
  - Dizziness [Unknown]
